FAERS Safety Report 10956705 (Version 4)
Quarter: 2015Q2

REPORT INFORMATION
  Report Type: Spontaneous
  Country: JP (occurrence: JP)
  Receive Date: 20150326
  Receipt Date: 20150624
  Transmission Date: 20150821
  Serious: Yes (Other)
  Sender: FDA-Public Use
  Company Number: JP-PFIZER INC-2015106603

PATIENT
  Age: 86 Year
  Sex: Male
  Weight: 65 kg

DRUGS (11)
  1. HARNAL [Concomitant]
     Active Substance: TAMSULOSIN HYDROCHLORIDE
     Dosage: UNK
  2. ONEALFA [Concomitant]
     Active Substance: ALFACALCIDOL
     Dosage: UNK
  3. PREDONINE [Concomitant]
     Active Substance: PREDNISOLONE\PREDNISOLONE ACETATE\PREDNISOLONE SODIUM SUCCINATE
     Indication: ANALGESIC THERAPY
     Dosage: 5 MG, 2X/DAY
     Route: 048
     Dates: start: 20150306
  4. ASPARA-CA [Concomitant]
     Active Substance: CALCIUM ASPARTATE
     Dosage: UNK
  5. CELECOX [Suspect]
     Active Substance: CELECOXIB
     Indication: ANALGESIC THERAPY
     Dosage: 100 MG, 2X/DAY
     Route: 048
     Dates: start: 20141220, end: 20150320
  6. DICLOFENAC NA [Concomitant]
     Indication: ANALGESIC THERAPY
     Dosage: 15 MG, 1X/DAY
     Route: 062
     Dates: start: 20141120, end: 20150320
  7. ARTZ [Concomitant]
     Indication: ARTHRALGIA
     Dosage: 1DF TO KNEE AND 1 DF TO SHOULDER, ONCE A FORTNIGHT
     Dates: start: 20141220, end: 20150320
  8. AMLODIPINE [Concomitant]
     Active Substance: AMLODIPINE BESYLATE
     Dosage: UNK
  9. MAGLAX [Concomitant]
     Active Substance: MAGNESIUM OXIDE
     Dosage: UNK
  10. DIOVAN [Concomitant]
     Active Substance: VALSARTAN
     Dosage: UNK
  11. MYSLEE [Concomitant]
     Active Substance: ZOLPIDEM TARTRATE
     Dosage: UNK

REACTIONS (2)
  - Blood potassium increased [Unknown]
  - Renal impairment [Unknown]

NARRATIVE: CASE EVENT DATE: 20150223
